FAERS Safety Report 6717213-6 (Version None)
Quarter: 2010Q2

REPORT INFORMATION
  Report Type: 
  Country: None (occurrence: None)
  Receive Date: 20100510
  Receipt Date: 20100430
  Transmission Date: 20101027
  Serious: Yes (Hospitalization)
  Sender: FDA-Public Use
  Company Number: PHHY2010CA28130

PATIENT
  Sex: Male

DRUGS (1)
  1. ACLASTA [Suspect]
     Dosage: 5 MG
     Route: 042
     Dates: start: 20100401

REACTIONS (4)
  - BLOOD PHOSPHORUS DECREASED [None]
  - CALCIUM IONISED DECREASED [None]
  - HYPERKALAEMIA [None]
  - HYPOMAGNESAEMIA [None]
